FAERS Safety Report 15228888 (Version 1)
Quarter: 2018Q3

REPORT INFORMATION
  Report Type: Spontaneous
  Country: US (occurrence: US)
  Receive Date: 20180801
  Receipt Date: 20180801
  Transmission Date: 20181010
  Serious: No
  Sender: FDA-Public Use
  Company Number: US-AMGEN-USASP2017118815

PATIENT
  Age: 75 Year
  Sex: Female

DRUGS (1)
  1. NPLATE [Suspect]
     Active Substance: ROMIPLOSTIM
     Indication: PRODUCT USED FOR UNKNOWN INDICATION
     Dosage: 250 MUG IN 0.5 ML SYRINGE UNK
     Route: 065
     Dates: start: 20170710

REACTIONS (1)
  - Rhesus antibodies positive [Unknown]

NARRATIVE: CASE EVENT DATE: 2017
